FAERS Safety Report 12960957 (Version 1)
Quarter: 2016Q4

REPORT INFORMATION
  Report Type: Other
  Country: CN (occurrence: CN)
  Receive Date: 20161121
  Receipt Date: 20161121
  Transmission Date: 20170207
  Serious: Yes (Other)
  Sender: FDA-Public Use
  Company Number: CN-TAKEDA-2016MPI009913

PATIENT
  Age: 69 Year
  Sex: Male
  Weight: 73 kg

DRUGS (6)
  1. VELCADE [Suspect]
     Active Substance: BORTEZOMIB
     Indication: PLASMA CELL MYELOMA
     Dosage: UNK
     Route: 058
  2. DEXAMETHASONE. [Suspect]
     Active Substance: DEXAMETHASONE
     Indication: PLASMA CELL MYELOMA
     Dosage: 20 MG, QD
     Route: 041
     Dates: start: 20160127, end: 20160217
  3. CYCLOPHOSPHAMIDE. [Suspect]
     Active Substance: CYCLOPHOSPHAMIDE
     Indication: PLASMA CELL MYELOMA
     Dosage: 0.2 G, QD
     Route: 041
     Dates: start: 20160127, end: 20160217
  4. CYCLOPHOSPHAMIDE. [Suspect]
     Active Substance: CYCLOPHOSPHAMIDE
     Dosage: UNK
     Route: 041
  5. VELCADE [Suspect]
     Active Substance: BORTEZOMIB
     Dosage: 2.4 MG, UNK
     Route: 058
     Dates: start: 20160127, end: 20160217
  6. DEXAMETHASONE. [Suspect]
     Active Substance: DEXAMETHASONE
     Dosage: UNK
     Route: 041

REACTIONS (4)
  - Lung infection [Unknown]
  - Flushing [Recovered/Resolved]
  - Abnormal faeces [Unknown]
  - Constipation [Recovered/Resolved]

NARRATIVE: CASE EVENT DATE: 20160215
